FAERS Safety Report 5128019-6 (Version None)
Quarter: 2006Q4

REPORT INFORMATION
  Report Type: 
  Country: None (occurrence: None)
  Receive Date: 20061013
  Receipt Date: 20061013
  Transmission Date: 20070319
  Serious: Yes (Life-Threatening, Other)
  Sender: FDA-Public Use
  Company Number: None

PATIENT
  Age: 21 Year
  Sex: Female
  Weight: 68.0396 kg

DRUGS (1)
  1. YASMIN [Suspect]
     Indication: CONTRACEPTION
     Dosage: 3.0 MG DROSPIRENONE 1X DAILY PO
     Route: 048
     Dates: start: 20020501, end: 20021001

REACTIONS (6)
  - DECREASED APPETITE [None]
  - DEPRESSION [None]
  - MOOD SWINGS [None]
  - SLEEP DISORDER [None]
  - SUICIDAL IDEATION [None]
  - SUICIDE ATTEMPT [None]
